FAERS Safety Report 7491695-7 (Version None)
Quarter: 2011Q2

REPORT INFORMATION
  Report Type: 
  Country: None (occurrence: None)
  Receive Date: 20110518
  Receipt Date: 20110518
  Transmission Date: 20111010
  Serious: No
  Sender: FDA-Public Use
  Company Number: None

PATIENT
  Age: 50 Year
  Sex: Female
  Weight: 65.318 kg

DRUGS (1)
  1. HYDROXYZINE HCL [Suspect]
     Indication: HYPERSENSITIVITY
     Dosage: 20 MG 1 IN THE EVENING PO
     Route: 048
     Dates: start: 20110503, end: 20110516

REACTIONS (4)
  - FEAR [None]
  - HYPERHIDROSIS [None]
  - THINKING ABNORMAL [None]
  - ANXIETY [None]
